FAERS Safety Report 14085429 (Version 1)
Quarter: 2017Q4

REPORT INFORMATION
  Report Type: Report from Study
  Country: BR (occurrence: BR)
  Receive Date: 20171013
  Receipt Date: 20171013
  Transmission Date: 20180321
  Serious: Yes (Death, Hospitalization)
  Sender: FDA-Public Use
  Company Number: PHHY2015BR122213

PATIENT
  Age: 94 Year
  Sex: Male
  Weight: 88 kg

DRUGS (4)
  1. EXELON PATCH [Suspect]
     Active Substance: RIVASTIGMINE
     Dosage: 9.5 MG, QD PATCH 10 (CM2)
     Route: 062
  2. EXELON PATCH [Suspect]
     Active Substance: RIVASTIGMINE
     Dosage: 4.6 MG, QD PATCH 5 (CM2)
     Route: 062
  3. EXELON PATCH [Suspect]
     Active Substance: RIVASTIGMINE
     Indication: DEMENTIA ALZHEIMER^S TYPE
     Dosage: 3.5 MG, QD
     Route: 062
     Dates: start: 20060617
  4. EXELON PATCH [Suspect]
     Active Substance: RIVASTIGMINE
     Dosage: 2 DF (4.6 MG, PATCH 5 (CM2)), QD
     Route: 062

REACTIONS (9)
  - Incorrect drug administration duration [Recovering/Resolving]
  - Sepsis [Fatal]
  - Cough [Unknown]
  - Tremor [Unknown]
  - Pyrexia [Fatal]
  - Laryngeal disorder [Unknown]
  - Pneumonia [Fatal]
  - Weight decreased [Unknown]
  - Dementia Alzheimer^s type [Fatal]

NARRATIVE: CASE EVENT DATE: 20170705
